FAERS Safety Report 9959097 (Version 1)
Quarter: 2014Q1

REPORT INFORMATION
  Report Type: Report from Study
  Country: US (occurrence: US)
  Receive Date: 20140305
  Receipt Date: 20140305
  Transmission Date: 20141002
  Serious: No
  Sender: FDA-Public Use
  Company Number: US-ABBVIE-13P-163-1102326-00

PATIENT
  Age: 58 Year
  Sex: Female

DRUGS (5)
  1. HUMIRA [Suspect]
     Indication: RHEUMATOID ARTHRITIS
     Dates: start: 2011
  2. PREDNISONE [Concomitant]
     Indication: RHEUMATOID ARTHRITIS
     Dosage: 10MG DAILY
  3. DILANTIN [Concomitant]
     Indication: CONVULSION
     Dosage: 200MG DAILY
  4. PROZAC [Concomitant]
     Indication: DEPRESSION
     Dosage: 10MG DAILY
  5. MORPHINE [Concomitant]
     Indication: PAIN

REACTIONS (1)
  - Muscle spasms [Recovered/Resolved]
